FAERS Safety Report 6019454-2 (Version None)
Quarter: 2008Q4

REPORT INFORMATION
  Report Type: 
  Country: None (occurrence: None)
  Receive Date: 20081224
  Receipt Date: 20081219
  Transmission Date: 20090506
  Serious: Yes (Disabling)
  Sender: FDA-Public Use
  Company Number: US-ELI_LILLY_AND_COMPANY-US200812005498

PATIENT
  Sex: Male

DRUGS (1)
  1. HUMALOG [Suspect]

REACTIONS (3)
  - FALL [None]
  - HIP FRACTURE [None]
  - PAIN IN EXTREMITY [None]
